FAERS Safety Report 19639315 (Version 2)
Quarter: 2021Q3

REPORT INFORMATION
  Report Type: Report from Study
  Country: MX (occurrence: MX)
  Receive Date: 20210730
  Receipt Date: 20210809
  Transmission Date: 20211014
  Serious: Yes (Other)
  Sender: FDA-Public Use
  Company Number: NVSC2021MX170244

PATIENT
  Sex: Male
  Weight: 90 kg

DRUGS (1)
  1. EXFORGE [Suspect]
     Active Substance: AMLODIPINE BESYLATE\VALSARTAN
     Indication: HYPERTENSION
     Dosage: 1 DF, BID (EVERY 12 HOURS)
     Route: 048

REACTIONS (4)
  - Prostatic disorder [Not Recovered/Not Resolved]
  - Inappropriate schedule of product administration [Unknown]
  - Deafness [Unknown]
  - Blood uric acid increased [Not Recovered/Not Resolved]
